FAERS Safety Report 8109905-1 (Version None)
Quarter: 2012Q1

REPORT INFORMATION
  Report Type: 
  Country: None (occurrence: None)
  Receive Date: 20120202
  Receipt Date: 20120123
  Transmission Date: 20120608
  Serious: No
  Sender: FDA-Public Use
  Company Number: US-AMGEN-USASP2012004644

PATIENT
  Age: 69 Year
  Sex: Female

DRUGS (1)
  1. ENBREL [Suspect]
     Indication: PSORIASIS
     Dosage: 50 MG, ONCE IN 4 DAYS
     Dates: start: 20091225

REACTIONS (6)
  - INJECTION SITE HAEMATOMA [None]
  - INJECTION SITE PAIN [None]
  - CORNEAL EROSION [None]
  - DRY EYE [None]
  - DRUG EFFECT DECREASED [None]
  - PSORIASIS [None]
